FAERS Safety Report 9411412 (Version 2)
Quarter: 2013Q3

REPORT INFORMATION
  Report Type: Spontaneous
  Country: US (occurrence: US)
  Receive Date: 20130722
  Receipt Date: 20130814
  Transmission Date: 20140515
  Serious: No
  Sender: FDA-Public Use
  Company Number: US-BIOGENIDEC-2013BI066317

PATIENT
  Age: 54 Year
  Sex: Female

DRUGS (1)
  1. TYSABRI [Suspect]
     Indication: MULTIPLE SCLEROSIS
     Route: 042
     Dates: start: 20130514

REACTIONS (12)
  - Exfoliative rash [Not Recovered/Not Resolved]
  - Irritability [Recovered/Resolved]
  - Migraine [Recovered/Resolved]
  - Muscle spasms [Recovered/Resolved]
  - Skin lesion [Recovered/Resolved]
  - Poor quality sleep [Not Recovered/Not Resolved]
  - Oral herpes [Recovered/Resolved]
  - Genital herpes [Unknown]
  - Fatigue [Recovered/Resolved]
  - Sinusitis [Recovered/Resolved]
  - Vaginal infection [Recovered/Resolved]
  - Malaise [Recovered/Resolved]
